FAERS Safety Report 5054333-9 (Version None)
Quarter: 2006Q2

REPORT INFORMATION
  Report Type: 
  Country: None (occurrence: None)
  Receive Date: 20060616
  Receipt Date: 20060508
  Transmission Date: 20061013
  Serious: No
  Sender: FDA-Public Use
  Company Number: 224817

PATIENT
  Age: 59 Year
  Sex: Female
  Weight: 69.4 kg

DRUGS (2)
  1. AVASTIN [Suspect]
     Indication: NON-SMALL CELL LUNG CANCER
     Dosage: 1041 MG,Q3W,INTRAVENOUS
     Route: 042
     Dates: start: 20060406
  2. LYRICA [Concomitant]

REACTIONS (1)
  - BLOOD CREATININE INCREASED [None]
